FAERS Safety Report 7096208-X (Version None)
Quarter: 2010Q4

REPORT INFORMATION
  Report Type: 
  Country: None (occurrence: None)
  Receive Date: 20101103
  Receipt Date: 20101012
  Transmission Date: 20110411
  Serious: Yes (Other)
  Sender: FDA-Public Use
  Company Number: JP-SOLVAY-00310006161

PATIENT
  Age: 50 Year
  Sex: Male

DRUGS (1)
  1. LUVOX [Suspect]
     Indication: PRODUCT USED FOR UNKNOWN INDICATION
     Dosage: ORAL
     Route: 048

REACTIONS (1)
  - PERICARDIAL EFFUSION [None]
